FAERS Safety Report 8258044-8 (Version None)
Quarter: 2012Q2

REPORT INFORMATION
  Report Type: 
  Country: None (occurrence: None)
  Receive Date: 20120404
  Receipt Date: 20120323
  Transmission Date: 20120825
  Serious: Yes (Other)
  Sender: FDA-Public Use
  Company Number: US-SANOFI-AVENTIS-2012SA020340

PATIENT
  Age: 62 Year
  Sex: Male

DRUGS (2)
  1. SOLOSTAR [Suspect]
     Dates: start: 20110101
  2. LANTUS [Suspect]
     Dosage: 10 UNITS IN AM AND 20 UNITS IN PM
     Route: 058
     Dates: start: 20110101

REACTIONS (3)
  - VASCULAR GRAFT [None]
  - TOE AMPUTATION [None]
  - PAIN IN EXTREMITY [None]
